FAERS Safety Report 6092166-5 (Version None)
Quarter: 2009Q1

REPORT INFORMATION
  Report Type: 
  Country: None (occurrence: None)
  Receive Date: 20090225
  Receipt Date: 20090214
  Transmission Date: 20090719
  Serious: Yes (Other)
  Sender: FDA-Public Use
  Company Number: US-PFIZER INC-2009161773

PATIENT
  Sex: Female
  Weight: 61.224 kg

DRUGS (6)
  1. NARDIL [Suspect]
     Indication: DEPRESSION
     Dosage: 30 MG, 2X/DAY
     Dates: start: 19780101
  2. HYDROCHLOROTHIAZIDE [Concomitant]
     Dosage: UNK
  3. LISINOPRIL [Concomitant]
     Indication: HYPERTENSION
     Dosage: UNK
  4. CALCIUM [Concomitant]
     Dosage: UNK
  5. VITAMIN D [Concomitant]
     Dosage: UNK
  6. MULTI-VITAMINS [Concomitant]
     Dosage: UNK

REACTIONS (3)
  - CEREBROVASCULAR ACCIDENT [None]
  - FOOD INTERACTION [None]
  - HYPERTENSIVE CRISIS [None]
